FAERS Safety Report 7582351-5 (Version None)
Quarter: 2011Q2

REPORT INFORMATION
  Report Type: 
  Country: None (occurrence: None)
  Receive Date: 20110527
  Receipt Date: 20110207
  Transmission Date: 20111010
  Serious: Yes (Hospitalization, Other)
  Sender: FDA-Public Use
  Company Number: US200910005432

PATIENT
  Age: 67 Year
  Sex: Female

DRUGS (13)
  1. SULFAMETHOXAZOLE AND TRIMETHOPRIM [Concomitant]
  2. VALTREX [Concomitant]
  3. METFORMIN HCL [Concomitant]
  4. GLIPIZIDE [Concomitant]
  5. CEPHALEXIN [Concomitant]
  6. MUPIROCIN [Concomitant]
  7. GABAPENTIN [Concomitant]
  8. OXYCODONE AND ACETAMINOPHEN [Concomitant]
  9. BYETTA [Suspect]
     Dosage: 5 UG,  10UG, UNK
     Dates: start: 20071201
  10. BYETTA [Suspect]
     Dosage: 5 UG,  10UG, UNK
     Dates: start: 20080126, end: 20080318
  11. EXENATIDE PEN, DISPOSABLE DEVICE (EXENATIDE PEN) PEN, DISPOSABLE [Concomitant]
  12. LISINOPRIL [Concomitant]
  13. GLIMEPIRIDE [Concomitant]

REACTIONS (1)
  - RENAL FAILURE [None]
